FAERS Safety Report 5518759-9 (Version None)
Quarter: 2007Q4

REPORT INFORMATION
  Report Type: 
  Country: None (occurrence: None)
  Receive Date: 20071113
  Receipt Date: 20071102
  Transmission Date: 20080405
  Serious: Yes (Hospitalization)
  Sender: FDA-Public Use
  Company Number: 062-C5013-07070868

PATIENT
  Age: 73 Year
  Sex: Male
  Weight: 84 kg

DRUGS (9)
  1. CC-5013 (LENALIDOMIDE) (CAPSULES) [Suspect]
     Indication: MULTIPLE MYELOMA
     Dosage: 25 MG, DAILY, ORAL ; 25 MG, ORAL
     Route: 048
     Dates: start: 20070705, end: 20070717
  2. CC-5013 (LENALIDOMIDE) (CAPSULES) [Suspect]
     Indication: MULTIPLE MYELOMA
     Dosage: 25 MG, DAILY, ORAL ; 25 MG, ORAL
     Route: 048
     Dates: start: 20070801
  3. DEXAMETHASONE TAB [Suspect]
     Indication: MULTIPLE MYELOMA
     Dosage: 40 MG, D1-4
     Dates: start: 20070705, end: 20070708
  4. BACTRIM DS [Concomitant]
  5. ACETYLSALICYLIC ACID SRT [Concomitant]
  6. KEPPRA [Concomitant]
  7. CLONAZEPAM [Concomitant]
  8. LYRICA [Concomitant]
  9. DIARONT(DIAROENT) [Concomitant]

REACTIONS (12)
  - AREFLEXIA [None]
  - BLOOD GLUCOSE INCREASED [None]
  - DISTURBANCE IN ATTENTION [None]
  - GRAND MAL CONVULSION [None]
  - HAEMATOCRIT DECREASED [None]
  - HAEMOGLOBIN DECREASED [None]
  - HYPOAESTHESIA [None]
  - MENTAL IMPAIRMENT [None]
  - PLATELET COUNT DECREASED [None]
  - RED CELL DISTRIBUTION WIDTH DECREASED [None]
  - TONGUE BITING [None]
  - WHITE BLOOD CELL COUNT DECREASED [None]
